FAERS Safety Report 12544854 (Version 1)
Quarter: 2016Q3

REPORT INFORMATION
  Report Type: Spontaneous
  Country: FR (occurrence: FR)
  Receive Date: 20160711
  Receipt Date: 20160711
  Transmission Date: 20161109
  Serious: Yes (Hospitalization, Other)
  Sender: FDA-Public Use
  Company Number: FR-PFIZER INC-2016330007

PATIENT
  Age: 59 Year
  Sex: Male

DRUGS (13)
  1. BIPRETERAX /06377001/ [Concomitant]
     Active Substance: INDAPAMIDE\PERINDOPRIL
     Dosage: 10
  2. INSULATARD FLEXPEN [Concomitant]
     Active Substance: INSULIN HUMAN
  3. SKENAN [Suspect]
     Active Substance: MORPHINE SULFATE
     Indication: TOXICITY TO VARIOUS AGENTS
     Dosage: UNK, SINGLE
     Route: 048
     Dates: start: 20160111, end: 20160111
  4. NEURONTIN [Suspect]
     Active Substance: GABAPENTIN
     Indication: TOXICITY TO VARIOUS AGENTS
     Dosage: UNK, SINGLE
     Route: 048
     Dates: start: 20160111, end: 20160111
  5. NOVORAPID [Concomitant]
     Active Substance: INSULIN ASPART
  6. ZOPICLONE [Suspect]
     Active Substance: ZOPICLONE
     Indication: TOXICITY TO VARIOUS AGENTS
     Dosage: UNK SINGLE
     Route: 048
     Dates: start: 20160111, end: 20160111
  7. CLOPIDOGREL [Concomitant]
     Active Substance: CLOPIDOGREL BISULFATE
     Dosage: 75
  8. LERCANIDIPINE [Concomitant]
     Active Substance: LERCANIDIPINE
     Dosage: 20
  9. SERESTA [Suspect]
     Active Substance: OXAZEPAM
     Indication: TOXICITY TO VARIOUS AGENTS
     Dosage: UNK SINGLE
     Route: 048
     Dates: start: 20160111, end: 20160111
  10. EZETROL [Concomitant]
     Active Substance: EZETIMIBE
  11. CRESTOR [Concomitant]
     Active Substance: ROSUVASTATIN CALCIUM
  12. EUPRESSYL /00631801/ [Concomitant]
     Active Substance: URAPIDIL
     Dosage: 60
  13. VENLAFAXINE [Concomitant]
     Active Substance: VENLAFAXINE HYDROCHLORIDE
     Dosage: 75

REACTIONS (10)
  - Somnolence [Recovered/Resolved]
  - Chest pain [Recovered/Resolved]
  - Confusional state [Unknown]
  - Depressed level of consciousness [Recovered/Resolved]
  - Toxicity to various agents [Recovered/Resolved]
  - Productive cough [Recovered/Resolved]
  - Road traffic accident [Unknown]
  - Malaise [Recovered/Resolved]
  - Pneumonia aspiration [Unknown]
  - Presyncope [Unknown]

NARRATIVE: CASE EVENT DATE: 20160111
